FAERS Safety Report 23266149 (Version 2)
Quarter: 2023Q4

REPORT INFORMATION
  Report Type: Spontaneous
  Country: IT (occurrence: IT)
  Receive Date: 20231206
  Receipt Date: 20231218
  Transmission Date: 20240109
  Serious: Yes (Life-Threatening, Hospitalization)
  Sender: FDA-Public Use
  Company Number: None

PATIENT
  Age: 79 Day
  Sex: Male
  Weight: 2 kg

DRUGS (6)
  1. LUCENTIS [Suspect]
     Active Substance: RANIBIZUMAB
     Indication: Retinopathy of prematurity
     Dosage: 1 DOSAGE FORM, ONCE/SINGLE (SINGOLA DOSE INTRAVITREALE, OCCHIO SINISTRO, 0,2 MG)
     Route: 050
     Dates: start: 20231107, end: 20231107
  2. OFLOXACIN [Concomitant]
     Active Substance: OFLOXACIN
     Indication: Antibiotic prophylaxis
     Dosage: 1 DRP (1/12 MILLILITRE) (1 GOCCIA X 4)
  3. TROPICAMIDE [Concomitant]
     Active Substance: TROPICAMIDE
     Indication: Medical procedure
     Dosage: 1 DRP (1/12 MILLILITRE) (1 GOCCIA X 3 VOLTE AL GIORNO)
     Dates: start: 20231107, end: 20231114
  4. VALCYTE [Concomitant]
     Active Substance: VALGANCICLOVIR HYDROCHLORIDE
     Indication: Cytomegalovirus infection
     Dosage: 30 MG, QD (30 MG/DIE, DAL 27/10/2023 RIPRESA DELLA TERAPIA.PRECEDENTE CORSO CON 34 MG/DIE DAL 28/09
     Dates: start: 20231027, end: 20231108
  5. FENTANYL [Concomitant]
     Active Substance: FENTANYL\FENTANYL CITRATE
     Indication: Infant sedation
     Dosage: 2 MG, ONCE/SINGLE (2 MG ESTEMPORANEO PER SEDAZIONE)
     Dates: start: 20231107, end: 20231107
  6. PROPOFOL [Concomitant]
     Active Substance: PROPOFOL
     Indication: Infant sedation
     Dosage: UNK
     Dates: start: 20231107, end: 20231107

REACTIONS (1)
  - Necrotising enterocolitis neonatal [Recovered/Resolved]

NARRATIVE: CASE EVENT DATE: 20231113
